FAERS Safety Report 10765248 (Version 2)
Quarter: 2015Q4

REPORT INFORMATION
  Report Type: Spontaneous
  Country: US (occurrence: US)
  Receive Date: 20150205
  Receipt Date: 20151210
  Transmission Date: 20160304
  Serious: Yes (Hospitalization, Other)
  Sender: FDA-Public Use
  Company Number: US-AMGEN-USASP2015009702

PATIENT
  Age: 56 Year
  Sex: Female

DRUGS (1)
  1. ENBREL [Suspect]
     Active Substance: ETANERCEPT
     Indication: RHEUMATOID ARTHRITIS
     Dosage: 50 MG, QWK
     Route: 065
     Dates: start: 20050520

REACTIONS (12)
  - Pericardial effusion [Recovered/Resolved]
  - Colostomy [Unknown]
  - Musculoskeletal disorder [Not Recovered/Not Resolved]
  - Post procedural infection [Recovered/Resolved]
  - Rash [Recovered/Resolved]
  - Injection site pain [Unknown]
  - Wheelchair user [Unknown]
  - Knee operation [Recovered/Resolved]
  - Sepsis [Recovered/Resolved]
  - Fistula of small intestine [Recovered/Resolved]
  - Pneumonia [Recovered/Resolved]
  - Colon operation [Unknown]

NARRATIVE: CASE EVENT DATE: 2014
